FAERS Safety Report 6500612-5 (Version None)
Quarter: 2009Q4

REPORT INFORMATION
  Report Type: 
  Country: None (occurrence: None)
  Receive Date: 20091216
  Receipt Date: 20081202
  Transmission Date: 20100525
  Serious: No
  Sender: FDA-Public Use
  Company Number: A0758924A

PATIENT
  Age: 39 Year
  Sex: Female

DRUGS (1)
  1. NICOTINE POLACRILEX [Suspect]
     Indication: SMOKING CESSATION THERAPY
     Dates: start: 20081128, end: 20081128

REACTIONS (3)
  - COUGH [None]
  - ORAL DISCOMFORT [None]
  - OROPHARYNGEAL DISCOMFORT [None]
